FAERS Safety Report 5246890-4 (Version None)
Quarter: 2007Q1

REPORT INFORMATION
  Report Type: 
  Country: None (occurrence: None)
  Receive Date: 20070226
  Receipt Date: 20070214
  Transmission Date: 20070707
  Serious: Yes (Hospitalization)
  Sender: FDA-Public Use
  Company Number: FR-PFIZER INC-2007012615

PATIENT
  Sex: Male

DRUGS (1)
  1. SU-011,248 [Suspect]
     Indication: METASTATIC RENAL CELL CARCINOMA
     Dosage: TEXT:25-FREQ:BY DAY: 28 DAYS 2 WEEKS REST
     Route: 048

REACTIONS (2)
  - ASTHENIA [None]
  - HYPOGLYCAEMIA [None]
